FAERS Safety Report 8472708-2 (Version None)
Quarter: 2012Q2

REPORT INFORMATION
  Report Type: 
  Country: None (occurrence: None)
  Receive Date: 20120627
  Receipt Date: 20120620
  Transmission Date: 20120825
  Serious: Yes (Hospitalization)
  Sender: FDA-Public Use
  Company Number: NL-MEDIMMUNE-MEDI-0012003

PATIENT
  Age: 3 Month
  Sex: Female
  Weight: 5.2 kg

DRUGS (4)
  1. SYNAGIS [Suspect]
     Indication: ANTIVIRAL PROPHYLAXIS
     Route: 030
     Dates: start: 20101120, end: 20101120
  2. SPIRONOLACTONE [Concomitant]
     Dates: start: 20100101
  3. LEVOTHYROXINE [Concomitant]
     Dates: start: 20100101
  4. FUROSEMIDE [Concomitant]
     Dates: start: 20100101

REACTIONS (3)
  - CARDIAC FAILURE [None]
  - DYSPNOEA [None]
  - RESPIRATORY TRACT INFECTION VIRAL [None]
